FAERS Safety Report 14733845 (Version 1)
Quarter: 2018Q2

REPORT INFORMATION
  Report Type: Spontaneous
  Country: US (occurrence: US)
  Receive Date: 20180409
  Receipt Date: 20180409
  Transmission Date: 20180711
  Serious: No
  Sender: FDA-Public Use
  Company Number: US-GLAXOSMITHKLINE-US2018054412

PATIENT
  Age: 9 Year
  Sex: Female

DRUGS (1)
  1. ABREVA [Suspect]
     Active Substance: DOCOSANOL
     Indication: ORAL HERPES
     Dosage: UNK 3 TIMES A DAY

REACTIONS (3)
  - Inappropriate schedule of drug administration [Recovering/Resolving]
  - Incorrect drug administration duration [Recovering/Resolving]
  - Drug administered to patient of inappropriate age [Recovering/Resolving]
